FAERS Safety Report 9798390 (Version 1)
Quarter: 2014Q1

REPORT INFORMATION
  Report Type: Report from Study
  Country: CN (occurrence: CN)
  Receive Date: 20140106
  Receipt Date: 20140106
  Transmission Date: 20141002
  Serious: Yes (Other)
  Sender: FDA-Public Use
  Company Number: CN-BAXTER-2013BAX053695

PATIENT
  Sex: 0

DRUGS (1)
  1. LOW CALCIUM PERITONEAL DIALYSIS SOLUTION ( LACTATE- G1.5%) [Suspect]
     Indication: RENAL FAILURE CHRONIC
     Dosage: 2-4 EXCHANGES DAILY
     Route: 033

REACTIONS (1)
  - Myocardial infarction [Unknown]
